FAERS Safety Report 10135703 (Version 1)
Quarter: 2014Q2

REPORT INFORMATION
  Report Type: Spontaneous
  Country: HK (occurrence: HK)
  Receive Date: 20140428
  Receipt Date: 20140428
  Transmission Date: 20141212
  Serious: Yes (Death, Other)
  Sender: FDA-Public Use
  Company Number: PHHY2014HK049206

PATIENT
  Age: 58 Year
  Sex: Female

DRUGS (2)
  1. HEPARIN [Suspect]
  2. INSULIN ISOPHANE, HUMAN BIOSYNTHETIC [Concomitant]

REACTIONS (9)
  - Death [Fatal]
  - Cerebrovascular accident [Unknown]
  - Deep vein thrombosis [Unknown]
  - Peripheral swelling [Unknown]
  - Somnolence [Unknown]
  - Hemiplegia [Unknown]
  - Cerebral artery thrombosis [Unknown]
  - Heparin-induced thrombocytopenia [Unknown]
  - Thrombotic cerebral infarction [Unknown]
